FAERS Safety Report 18554674 (Version 1)
Quarter: 2020Q4

REPORT INFORMATION
  Report Type: Spontaneous
  Country: US (occurrence: US)
  Receive Date: 20201127
  Receipt Date: 20201127
  Transmission Date: 20210114
  Serious: No
  Sender: FDA-Public Use
  Company Number: US-LUPIN PHARMACEUTICALS INC.-2020-06525

PATIENT
  Sex: Female

DRUGS (1)
  1. GAVILAX [Suspect]
     Active Substance: POLYETHYLENE GLYCOL 3350
     Indication: PRODUCT USED FOR UNKNOWN INDICATION
     Dosage: UNK (2 BOTTLES)
     Route: 048

REACTIONS (5)
  - Poor quality product administered [Unknown]
  - Product taste abnormal [Unknown]
  - Product odour abnormal [Unknown]
  - No adverse event [Unknown]
  - Product container seal issue [Unknown]
